FAERS Safety Report 6233094-1 (Version None)
Quarter: 2009Q2

REPORT INFORMATION
  Report Type: 
  Country: None (occurrence: None)
  Receive Date: 20090617
  Receipt Date: 20090604
  Transmission Date: 20091009
  Serious: Yes (Other)
  Sender: FDA-Public Use
  Company Number: FR-ELI_LILLY_AND_COMPANY-FR200904007151

PATIENT
  Age: 53 Year
  Sex: Female

DRUGS (3)
  1. CYMBALTA [Suspect]
     Indication: DEPRESSION
     Dosage: 60 MG, UNK
     Route: 048
     Dates: start: 20071227, end: 20090120
  2. CYMBALTA [Suspect]
     Dosage: 30 MG, UNK
     Route: 048
     Dates: start: 20090120, end: 20090201
  3. DEPAKOTE [Concomitant]
     Indication: CYCLOTHYMIC DISORDER
     Dosage: 500 MG, UNK
     Route: 048

REACTIONS (1)
  - OCULAR HYPERTENSION [None]
